FAERS Safety Report 18667651 (Version 2)
Quarter: 2021Q1

REPORT INFORMATION
  Report Type: Other
  Country: DE (occurrence: DE)
  Receive Date: 20201228
  Receipt Date: 20210325
  Transmission Date: 20210419
  Serious: Yes (Hospitalization)
  Sender: FDA-Public Use
  Company Number: DE-ROCHE-2735096

PATIENT
  Age: 30 Year
  Sex: Female
  Weight: 64 kg

DRUGS (28)
  1. PREDNISOLONE. [Concomitant]
     Active Substance: PREDNISOLONE
     Route: 042
     Dates: start: 20190524, end: 20190524
  2. RANITIDINE. [Concomitant]
     Active Substance: RANITIDINE
     Route: 048
     Dates: start: 20180508, end: 20180510
  3. RANITIDINE. [Concomitant]
     Active Substance: RANITIDINE
     Route: 048
     Dates: start: 20181104, end: 20181106
  4. AERIUS [Concomitant]
     Route: 048
     Dates: start: 20190523, end: 20190525
  5. AERIUS [Concomitant]
     Route: 048
     Dates: start: 20180424, end: 20180426
  6. PREDNISOLONE. [Concomitant]
     Active Substance: PREDNISOLONE
     Route: 042
     Dates: start: 20180509, end: 20180509
  7. OCRELIZUMAB. [Suspect]
     Active Substance: OCRELIZUMAB
     Route: 042
     Dates: start: 20181105
  8. OCRELIZUMAB. [Suspect]
     Active Substance: OCRELIZUMAB
     Indication: RELAPSING MULTIPLE SCLEROSIS
     Route: 042
     Dates: start: 20180425, end: 20180509
  9. AERIUS [Concomitant]
     Route: 048
     Dates: start: 20180508, end: 20180510
  10. L?CARNITINE [Concomitant]
     Active Substance: LEVOCARNITINE
  11. MIRTAZAPINE. [Concomitant]
     Active Substance: MIRTAZAPINE
     Indication: DEPRESSION
     Route: 048
     Dates: start: 2016
  12. RANITIDINE. [Concomitant]
     Active Substance: RANITIDINE
     Route: 048
     Dates: start: 20180424, end: 20180424
  13. DEKRISTOL [Concomitant]
     Active Substance: CHOLECALCIFEROL
     Indication: VITAMIN D DEFICIENCY
     Route: 048
     Dates: start: 20141020, end: 20180601
  14. QUETIAPINE. [Concomitant]
     Active Substance: QUETIAPINE
     Indication: DEPRESSION
     Route: 048
     Dates: start: 20180503, end: 202006
  15. ALFACALCIDOL [Concomitant]
     Active Substance: ALFACALCIDOL
     Indication: VITAMIN D DEFICIENCY
     Route: 048
     Dates: start: 20180601
  16. LITHIUM. [Concomitant]
     Active Substance: LITHIUM
     Indication: HYPERTHYROIDISM
     Route: 048
     Dates: start: 202001, end: 202008
  17. RANITIDINE. [Concomitant]
     Active Substance: RANITIDINE
     Route: 048
     Dates: start: 20190523, end: 20190525
  18. ZOPICLONE [Concomitant]
     Active Substance: ZOPICLONE
     Indication: DEPRESSION
     Route: 048
  19. BELLISSIMA [Concomitant]
     Active Substance: CHLORMADINONE ACETATE\ETHINYL ESTRADIOL
     Dates: start: 20180101, end: 202008
  20. QUETIAPINE. [Concomitant]
     Active Substance: QUETIAPINE
     Indication: ANXIETY DISORDER
     Route: 048
     Dates: start: 20200605, end: 202008
  21. DULOXETINE. [Concomitant]
     Active Substance: DULOXETINE
     Indication: DEPRESSION
     Route: 048
     Dates: start: 201610, end: 202008
  22. PREDNISOLONE. [Concomitant]
     Active Substance: PREDNISOLONE
     Route: 042
     Dates: start: 20181105, end: 20181105
  23. COENZYM Q10 [Concomitant]
     Indication: PROPHYLAXIS
  24. CETIRIZINE [Concomitant]
     Active Substance: CETIRIZINE HYDROCHLORIDE
     Indication: HYPERSENSITIVITY
     Dosage: DEFINITION OF THE INTERVAL: AS REQUIRED
     Route: 048
  25. PARACETAMOL [Concomitant]
     Active Substance: ACETAMINOPHEN
     Route: 048
  26. IBUPROFEN. [Concomitant]
     Active Substance: IBUPROFEN
     Route: 048
     Dates: start: 2012
  27. AERIUS [Concomitant]
     Route: 048
     Dates: start: 20181104, end: 20181106
  28. PREDNISOLUT [Concomitant]
     Active Substance: PREDNISOLONE
     Route: 042
     Dates: start: 20180425, end: 20180425

REACTIONS (6)
  - Depressive symptom [Unknown]
  - Mood disorder due to a general medical condition [Unknown]
  - Initial insomnia [Unknown]
  - Arthropod bite [Unknown]
  - Compulsions [Unknown]
  - Anaemia [Unknown]

NARRATIVE: CASE EVENT DATE: 202006
